FAERS Safety Report 23513737 (Version 2)
Quarter: 2024Q1

REPORT INFORMATION
  Report Type: Spontaneous
  Country: US (occurrence: US)
  Receive Date: 20240212
  Receipt Date: 20240223
  Transmission Date: 20240410
  Serious: Yes (Other)
  Sender: FDA-Public Use
  Company Number: US-ORGANON-O2311USA000087

PATIENT
  Sex: Female

DRUGS (1)
  1. NEXPLANON [Suspect]
     Active Substance: ETONOGESTREL
     Dosage: 1 IMPLANT
     Route: 059
     Dates: start: 2021

REACTIONS (8)
  - Abortion spontaneous [Unknown]
  - Device dislocation [Not Recovered/Not Resolved]
  - Pregnancy with implant contraceptive [Recovered/Resolved]
  - Nerve injury [Not Recovered/Not Resolved]
  - Complication associated with device [Recovered/Resolved]
  - Unintended pregnancy [Recovered/Resolved]
  - Chest pain [Unknown]
  - Dyspnoea [Unknown]

NARRATIVE: CASE EVENT DATE: 20220101
